FAERS Safety Report 16852172 (Version 2)
Quarter: 2019Q4

REPORT INFORMATION
  Report Type: Spontaneous
  Country: AR (occurrence: AR)
  Receive Date: 20190925
  Receipt Date: 20191011
  Transmission Date: 20200122
  Serious: Yes (Other)
  Sender: FDA-Public Use
  Company Number: AR-009507513-1909ARG008707

PATIENT
  Age: 17 Year
  Sex: Female
  Weight: 54 kg

DRUGS (1)
  1. IMPLANON NXT [Suspect]
     Active Substance: ETONOGESTREL
     Indication: CONTRACEPTION
     Dosage: 1 IMPLANT, SINGLE INSERTION
     Route: 059
     Dates: start: 20190301, end: 20190505

REACTIONS (1)
  - Granuloma [Recovering/Resolving]

NARRATIVE: CASE EVENT DATE: 20190315
